FAERS Safety Report 6072516-6 (Version None)
Quarter: 2009Q1

REPORT INFORMATION
  Report Type: 
  Country: None (occurrence: None)
  Receive Date: 20090210
  Receipt Date: 20090202
  Transmission Date: 20090719
  Serious: Yes (Disabling)
  Sender: FDA-Public Use
  Company Number: FR-SANOFI-SYNTHELABO-A01200901040

PATIENT
  Sex: Male

DRUGS (1)
  1. PLAVIX [Suspect]
     Indication: ARTERITIS
     Route: 048

REACTIONS (2)
  - NECROSIS [None]
  - PERIPHERAL ISCHAEMIA [None]
